FAERS Safety Report 8252092-X (Version None)
Quarter: 2012Q2

REPORT INFORMATION
  Report Type: 
  Country: None (occurrence: None)
  Receive Date: 20120402
  Receipt Date: 20110608
  Transmission Date: 20120825
  Serious: No
  Sender: FDA-Public Use
  Company Number: US-ABBOTT-11P-163-0731757-00

PATIENT
  Sex: Male

DRUGS (5)
  1. TRAZODONE HCL [Concomitant]
     Indication: DEPRESSION
  2. LOVAZA [Concomitant]
     Indication: BLOOD CHOLESTEROL INCREASED
  3. ANDROGEL [Suspect]
     Indication: BLOOD TESTOSTERONE DECREASED
     Dosage: 7.5 G DAILY
     Dates: start: 20100901
  4. VYTORIN [Concomitant]
     Indication: BLOOD CHOLESTEROL INCREASED
  5. WELLBUTRIN [Concomitant]
     Indication: DEPRESSION

REACTIONS (1)
  - ANGER [None]
